FAERS Safety Report 13569865 (Version 3)
Quarter: 2017Q2

REPORT INFORMATION
  Report Type: Spontaneous
  Country: US (occurrence: US)
  Receive Date: 20170522
  Receipt Date: 20170630
  Transmission Date: 20170830
  Serious: Yes (Other)
  Sender: FDA-Public Use
  Company Number: US-SUNOVION-2017SUN002154

PATIENT

DRUGS (9)
  1. LATUDA [Suspect]
     Active Substance: LURASIDONE HYDROCHLORIDE
     Indication: AFFECTIVE DISORDER
     Dosage: UNK
     Route: 048
  2. FANAPT [Suspect]
     Active Substance: ILOPERIDONE
  3. AMITRIPTYLINE [Concomitant]
     Active Substance: AMITRIPTYLINE
     Indication: DEPRESSION
  4. ATIVAN [Concomitant]
     Active Substance: LORAZEPAM
     Indication: ANXIETY
  5. LITHIUM. [Concomitant]
     Active Substance: LITHIUM
     Indication: AFFECTIVE DISORDER
  6. INVEGA [Suspect]
     Active Substance: PALIPERIDONE
  7. CLONIDINE. [Concomitant]
     Active Substance: CLONIDINE
     Indication: SLEEP DISORDER
  8. RISPERIDONE. [Suspect]
     Active Substance: RISPERIDONE
  9. HALDOL [Concomitant]
     Active Substance: HALOPERIDOL

REACTIONS (3)
  - Food craving [Unknown]
  - Weight increased [Unknown]
  - Off label use [Unknown]
